FAERS Safety Report 9417168 (Version 5)
Quarter: 2013Q4

REPORT INFORMATION
  Report Type: Spontaneous
  Country: GB (occurrence: None)
  Receive Date: 20130722
  Receipt Date: 20131127
  Transmission Date: 20140711
  Serious: Yes (Death)
  Sender: FDA-Public Use
  Company Number: AMAG201300115

PATIENT
  Age: 87 Year
  Sex: Male
  Weight: 87.9 kg

DRUGS (9)
  1. RIENSO [Suspect]
     Indication: NEPHROGENIC ANAEMIA
     Route: 040
     Dates: start: 20130617, end: 20130617
  2. ALFACALCIDOL (ALFACALCIDOL) [Concomitant]
  3. BISOPROLOL [Concomitant]
  4. CO-CODAMOL (CO-CODAMOL) [Concomitant]
  5. FERROUS FUMARATE (FERROUS FUMARATE) [Concomitant]
  6. FUROSEMIDE (FUROSEMIDE) [Concomitant]
  7. LACTULOSE (LACTULOSE) [Concomitant]
  8. MOMETASONE FUROATE (MOMETASONE FUROATE) [Concomitant]
  9. SODIUM BICARBONATE (SODIUM BICARBONATE) [Concomitant]

REACTIONS (1)
  - Death [None]
